FAERS Safety Report 9653161 (Version 1)
Quarter: 2013Q4

REPORT INFORMATION
  Report Type: Spontaneous
  Country: US (occurrence: US)
  Receive Date: 20131029
  Receipt Date: 20131029
  Transmission Date: 20140711
  Serious: Yes (Hospitalization, Other)
  Sender: FDA-Public Use
  Company Number: US-PFIZER INC-2013307036

PATIENT
  Age: 60 Year
  Sex: Male
  Weight: 93.88 kg

DRUGS (4)
  1. VORICONAZOLE [Suspect]
     Indication: FUNGAL INFECTION
     Dosage: 200 MG, UNK
  2. ACYCLOVIR [Concomitant]
     Dosage: 400 MG, UNK
  3. CIPROFLOXACIN [Concomitant]
     Dosage: 500 MG, UNK
  4. MELOXICAM [Concomitant]
     Dosage: UNK

REACTIONS (1)
  - Leukaemia [Unknown]
